FAERS Safety Report 10651768 (Version 1)
Quarter: 2014Q4

REPORT INFORMATION
  Report Type: Spontaneous
  Country: CH (occurrence: None)
  Receive Date: 20141211
  Receipt Date: 20141211
  Transmission Date: 20150529
  Serious: Yes (Hospitalization)
  Sender: FDA-Public Use
  Company Number: 20140776

PATIENT
  Age: 35 Year
  Sex: Female
  Weight: 32 kg

DRUGS (13)
  1. MYAMBUTOL (ETHAMBUTOL) [Concomitant]
  2. SUSTIVA (EFAVIRENZ) [Concomitant]
  3. PYRAZINAMIDE. [Concomitant]
     Active Substance: PYRAZINAMIDE
  4. RIFADIN (RIFAMPICIN) [Concomitant]
  5. VIREAD (TENOFOVIR) [Concomitant]
  6. VENOFER [Suspect]
     Active Substance: IRON SUCROSE
     Indication: ANAEMIA
  7. SULFAMETHOXAZOLE [Concomitant]
     Active Substance: SULFAMETHOXAZOLE
  8. DIFLUCAN [Concomitant]
     Active Substance: FLUCONAZOLE
  9. CLAFORAN [Concomitant]
     Active Substance: CEFOTAXIME SODIUM
  10. SILVER SULFADIAZENE [Concomitant]
     Active Substance: SILVER SULFADIAZINE
  11. ISONIAZID. [Concomitant]
     Active Substance: ISONIAZID
  12. LAMIVUDINE (EPIVIR) [Concomitant]
  13. RED BLOOD CELLS [Concomitant]
     Active Substance: HUMAN RED BLOOD CELL

REACTIONS (4)
  - Depression [None]
  - Herpes virus infection [None]
  - Simplex virus test positive [None]
  - Hypophagia [None]
